FAERS Safety Report 7492656-4 (Version None)
Quarter: 2011Q2

REPORT INFORMATION
  Report Type: 
  Country: None (occurrence: None)
  Receive Date: 20110519
  Receipt Date: 20110503
  Transmission Date: 20111010
  Serious: Yes (Other)
  Sender: FDA-Public Use
  Company Number: US-BAYER-201039461NA

PATIENT
  Sex: Male

DRUGS (6)
  1. TRASYLOL [Suspect]
     Indication: PRODUCT USED FOR UNKNOWN INDICATION
  2. SPIRONOLACTONE [Concomitant]
     Indication: PRODUCT USED FOR UNKNOWN INDICATION
     Dosage: 50 MG, BID
     Route: 048
     Dates: start: 20020816
  3. CLONIDINE [Concomitant]
     Indication: PRODUCT USED FOR UNKNOWN INDICATION
     Dosage: 0.2 MG, BID
     Route: 048
     Dates: start: 20031215
  4. HYDRALAZINE HCL [Concomitant]
     Indication: PRODUCT USED FOR UNKNOWN INDICATION
     Dosage: 25 MG, BID
     Route: 048
     Dates: start: 20020812
  5. PROCARDIA XL [Concomitant]
     Indication: PRODUCT USED FOR UNKNOWN INDICATION
     Dosage: 60 MG, QD
     Route: 048
     Dates: start: 20020812
  6. TOPROL-XL [Concomitant]
     Indication: PRODUCT USED FOR UNKNOWN INDICATION
     Dosage: 50 MG, QD
     Dates: start: 20060311

REACTIONS (14)
  - ANXIETY [None]
  - RENAL INJURY [None]
  - MULTI-ORGAN FAILURE [None]
  - FEAR [None]
  - PAIN [None]
  - ANHEDONIA [None]
  - DISABILITY [None]
  - UNEVALUABLE EVENT [None]
  - INJURY [None]
  - DEPRESSION [None]
  - EMOTIONAL DISTRESS [None]
  - RENAL FAILURE [None]
  - NERVOUSNESS [None]
  - FEAR OF DEATH [None]
